FAERS Safety Report 17083331 (Version 1)
Quarter: 2019Q4

REPORT INFORMATION
  Report Type: Spontaneous
  Country: IT (occurrence: IT)
  Receive Date: 20191127
  Receipt Date: 20191127
  Transmission Date: 20200122
  Serious: Yes (Hospitalization)
  Sender: FDA-Public Use
  Company Number: NVSC2019IT044366

PATIENT
  Age: 86 Year
  Sex: Female

DRUGS (5)
  1. PAROXETINE. [Concomitant]
     Active Substance: PAROXETINE
     Indication: PRODUCT USED FOR UNKNOWN INDICATION
     Dosage: 20 MG
     Route: 065
  2. CITALOPRAM [Concomitant]
     Active Substance: CITALOPRAM HYDROBROMIDE
     Indication: PRODUCT USED FOR UNKNOWN INDICATION
     Dosage: 20 MG
     Route: 065
  3. TRITTICO [Suspect]
     Active Substance: TRAZODONE HYDROCHLORIDE
     Indication: MAJOR DEPRESSION
     Dosage: UNK
     Route: 048
  4. OLANZAPINE. [Suspect]
     Active Substance: OLANZAPINE
     Indication: MAJOR DEPRESSION
     Dosage: 15 MG, ONCE/SINGLE (TOTAL)
     Route: 048
  5. DEPAKIN [Concomitant]
     Active Substance: VALPROATE SODIUM
     Indication: PRODUCT USED FOR UNKNOWN INDICATION
     Dosage: 300 MG
     Route: 065

REACTIONS (3)
  - Toxicity to various agents [Not Recovered/Not Resolved]
  - Confusional state [Not Recovered/Not Resolved]
  - Drug abuse [Not Recovered/Not Resolved]

NARRATIVE: CASE EVENT DATE: 20190306
